FAERS Safety Report 8222271-6 (Version None)
Quarter: 2012Q1

REPORT INFORMATION
  Report Type: 
  Country: None (occurrence: None)
  Receive Date: 20120320
  Receipt Date: 20120312
  Transmission Date: 20120608
  Serious: Yes (Life-Threatening, Hospitalization, Disabling, Other)
  Sender: FDA-Public Use
  Company Number: US-GLAXOSMITHKLINE-A0969331A

PATIENT
  Age: 81 Year
  Sex: Female

DRUGS (3)
  1. COUMADIN [Suspect]
     Indication: PRODUCT USED FOR UNKNOWN INDICATION
  2. XELODA [Concomitant]
  3. TYKERB [Suspect]
     Indication: BREAST CANCER
     Dosage: 250MG THREE TIMES PER DAY
     Route: 048
     Dates: start: 20120201, end: 20120219

REACTIONS (6)
  - DIARRHOEA [None]
  - COAGULOPATHY [None]
  - INTESTINAL ISCHAEMIA [None]
  - THROMBOSIS [None]
  - INTERNATIONAL NORMALISED RATIO INCREASED [None]
  - HYPOXIA [None]
